FAERS Safety Report 7035329-4 (Version None)
Quarter: 2010Q4

REPORT INFORMATION
  Report Type: 
  Country: None (occurrence: None)
  Receive Date: 20101008
  Receipt Date: 20100930
  Transmission Date: 20110411
  Serious: Yes (Other)
  Sender: FDA-Public Use
  Company Number: B0678281A

PATIENT
  Age: 50 Year
  Sex: Female

DRUGS (1)
  1. SUMATRIPTAN SUCCINATE [Suspect]

REACTIONS (3)
  - ARRHYTHMIA [None]
  - DAYDREAMING [None]
  - EPILEPSY [None]
